FAERS Safety Report 9009148 (Version 2)
Quarter: 2013Q1

REPORT INFORMATION
  Report Type: Report from Study
  Country: AR (occurrence: AR)
  Receive Date: 20130111
  Receipt Date: 20130201
  Transmission Date: 20140127
  Serious: Yes (Hospitalization, Other)
  Sender: FDA-Public Use
  Company Number: AR-ABBOTT-13P-007-1032879-00

PATIENT
  Age: 68 Year
  Sex: Female

DRUGS (1)
  1. HUMIRA [Suspect]
     Indication: RHEUMATOID ARTHRITIS
     Route: 058
     Dates: start: 20120501, end: 20120904

REACTIONS (5)
  - Musculoskeletal stiffness [Unknown]
  - Central nervous system infection [Recovered/Resolved]
  - Viral infection [Unknown]
  - Brain abscess [Unknown]
  - Gait disturbance [Unknown]
